FAERS Safety Report 6664784-4 (Version None)
Quarter: 2010Q1

REPORT INFORMATION
  Report Type: 
  Country: None (occurrence: None)
  Receive Date: 20100330
  Receipt Date: 20100308
  Transmission Date: 20100710
  Serious: Yes (Hospitalization)
  Sender: FDA-Public Use
  Company Number: AUR-ALP-2010-0072

PATIENT
  Age: 73 Year
  Sex: Female

DRUGS (10)
  1. ZOLPIDEM [Suspect]
     Dosage: ~180MG, ONE TIME
  2. BROMAZEPAM [Suspect]
     Dosage: ~140 MG, ONE TIME
  3. AMLODIPINE [Concomitant]
  4. ATORVASTATIN CALCIUM [Concomitant]
  5. BETAHISTINE [Concomitant]
  6. DIPYRADAMILE [Concomitant]
  7. FLUINDIONE [Concomitant]
  8. GLICLAZIDE [Concomitant]
  9. RAMIPRIL [Concomitant]
  10. AMIODARONE HCL [Suspect]

REACTIONS (12)
  - BRADYPNOEA [None]
  - CIRCULATORY COLLAPSE [None]
  - COMA [None]
  - CONFUSIONAL STATE [None]
  - DRUG TOXICITY [None]
  - HYPOTHERMIA [None]
  - INTERNATIONAL NORMALISED RATIO INCREASED [None]
  - LOSS OF CONSCIOUSNESS [None]
  - MULTIPLE DRUG OVERDOSE [None]
  - PNEUMONIA ASPIRATION [None]
  - PROTEIN TOTAL DECREASED [None]
  - SINUS BRADYCARDIA [None]
